FAERS Safety Report 20237285 (Version 1)
Quarter: 2021Q4

REPORT INFORMATION
  Report Type: Spontaneous
  Country: US (occurrence: None)
  Receive Date: 20211227
  Receipt Date: 20211227
  Transmission Date: 20220303
  Serious: Yes (Death)
  Sender: FDA-Public Use
  Company Number: None

PATIENT
  Sex: Male

DRUGS (3)
  1. TEMOZOLOMIDE [Suspect]
     Active Substance: TEMOZOLOMIDE
     Indication: Metastases to central nervous system
     Dosage: OTHER FREQUENCY : QHS;?
     Route: 048
     Dates: start: 20211130
  2. MEKTOVI [Suspect]
     Active Substance: BINIMETINIB
     Indication: Metastases to central nervous system
     Dosage: FREQUENCY : TWICE A DAY;?
     Route: 048
     Dates: start: 20210602
  3. BRAFTOVI [Concomitant]
     Active Substance: ENCORAFENIB
     Dates: start: 20210604

REACTIONS (1)
  - Death [None]
